FAERS Safety Report 7266611-3 (Version None)
Quarter: 2011Q1

REPORT INFORMATION
  Report Type: 
  Country: None (occurrence: None)
  Receive Date: 20110131
  Receipt Date: 20110119
  Transmission Date: 20110831
  Serious: Yes (Other)
  Sender: FDA-Public Use
  Company Number: BR-GENENTECH-301291

PATIENT
  Sex: Female
  Weight: 68 kg

DRUGS (5)
  1. RITUXIMAB [Suspect]
     Indication: SYSTEMIC LUPUS ERYTHEMATOSUS
     Dosage: 1000 MG, UNK
     Route: 042
     Dates: start: 20100419
  2. TYLENOL-500 [Concomitant]
     Indication: PRODUCT USED FOR UNKNOWN INDICATION
     Dosage: 750 MG, UNK
  3. RITUXIMAB [Suspect]
     Dosage: UNK
     Route: 042
     Dates: start: 20100505
  4. DORFLEX [Concomitant]
     Indication: PRODUCT USED FOR UNKNOWN INDICATION
  5. NOVALGINA [Concomitant]
     Indication: PRODUCT USED FOR UNKNOWN INDICATION

REACTIONS (13)
  - HAIR TEXTURE ABNORMAL [None]
  - ALOPECIA [None]
  - IMMUNODEFICIENCY [None]
  - DRUG INEFFECTIVE [None]
  - FALL [None]
  - SKIN LESION [None]
  - INTERVERTEBRAL DISC PROTRUSION [None]
  - SYSTEMIC LUPUS ERYTHEMATOSUS [None]
  - SYNCOPE [None]
  - HEADACHE [None]
  - HOT FLUSH [None]
  - DYSGEUSIA [None]
  - FEAR [None]
